FAERS Safety Report 11603672 (Version 1)
Quarter: 2015Q4

REPORT INFORMATION
  Report Type: Spontaneous
  Country: US (occurrence: US)
  Receive Date: 20151007
  Receipt Date: 20151007
  Transmission Date: 20160304
  Serious: Yes (Other)
  Sender: FDA-Public Use
  Company Number: US-ASTRAZENECA-2015SE94303

PATIENT
  Age: 24868 Day
  Sex: Male
  Weight: 72.6 kg

DRUGS (3)
  1. SYMBICORT [Suspect]
     Active Substance: BUDESONIDE\FORMOTEROL FUMARATE DIHYDRATE
     Indication: ASTHMA
     Dosage: 160 UG BID,4.5 MCG
     Route: 055
     Dates: start: 201508, end: 20150908
  2. ZYRTEC [Concomitant]
     Active Substance: CETIRIZINE HYDROCHLORIDE
     Indication: HYPERSENSITIVITY
     Dosage: TWO TIMES A DAY
  3. FLONASE [Concomitant]
     Active Substance: FLUTICASONE PROPIONATE
     Indication: HYPERSENSITIVITY
     Dosage: DAILY
     Route: 055

REACTIONS (16)
  - Overdose [Unknown]
  - Fatigue [Not Recovered/Not Resolved]
  - Balance disorder [Unknown]
  - Ageusia [Recovering/Resolving]
  - Pain in extremity [Not Recovered/Not Resolved]
  - Insomnia [Recovering/Resolving]
  - Dyspnoea [Unknown]
  - Dysphonia [Recovering/Resolving]
  - Fall [Unknown]
  - Dyspnoea [Not Recovered/Not Resolved]
  - Sleep disorder [Unknown]
  - Hypophagia [Recovering/Resolving]
  - Secretion discharge [Unknown]
  - Decreased appetite [Recovering/Resolving]
  - Gait disturbance [Recovering/Resolving]
  - Anxiety [Unknown]

NARRATIVE: CASE EVENT DATE: 201508
